FAERS Safety Report 20417797 (Version 3)
Quarter: 2022Q1

REPORT INFORMATION
  Report Type: Spontaneous
  Country: US (occurrence: None)
  Receive Date: 20220202
  Receipt Date: 20220318
  Transmission Date: 20220423
  Serious: Yes (Life-Threatening, Hospitalization, Other)
  Sender: FDA-Public Use
  Company Number: 2022A050857

PATIENT
  Age: 52 Year
  Sex: Female
  Weight: 73.5 kg

DRUGS (7)
  1. FASENRA [Suspect]
     Active Substance: BENRALIZUMAB
     Indication: Chronic obstructive pulmonary disease
     Route: 058
     Dates: start: 2021
  2. FASENRA [Suspect]
     Active Substance: BENRALIZUMAB
     Indication: Asthma
     Route: 058
     Dates: start: 2021
  3. DALIRESP [Suspect]
     Active Substance: ROFLUMILAST
     Indication: Hypersensitivity
     Route: 048
  4. DALIRESP [Suspect]
     Active Substance: ROFLUMILAST
     Indication: Hypersensitivity
     Route: 048
     Dates: start: 2020
  5. FASENRA [Suspect]
     Active Substance: BENRALIZUMAB
     Indication: Chronic obstructive pulmonary disease
     Route: 048
  6. FASENRA [Suspect]
     Active Substance: BENRALIZUMAB
     Indication: Asthma
     Route: 048
  7. PREDNISONE [Concomitant]
     Active Substance: PREDNISONE

REACTIONS (24)
  - Pneumonia [Not Recovered/Not Resolved]
  - Coronary artery occlusion [Not Recovered/Not Resolved]
  - Chronic respiratory failure [Not Recovered/Not Resolved]
  - Supraventricular tachycardia [Not Recovered/Not Resolved]
  - Chronic obstructive pulmonary disease [Not Recovered/Not Resolved]
  - Respiratory failure [Not Recovered/Not Resolved]
  - Atrioventricular block [Unknown]
  - Neoplasm malignant [Unknown]
  - COVID-19 pneumonia [Unknown]
  - Sinus arrhythmia [Unknown]
  - Rales [Not Recovered/Not Resolved]
  - Cartilage injury [Not Recovered/Not Resolved]
  - Nausea [Recovered/Resolved]
  - Supraventricular extrasystoles [Unknown]
  - Mental disorder [Unknown]
  - COVID-19 [Recovering/Resolving]
  - Breath sounds abnormal [Not Recovered/Not Resolved]
  - Dyspnoea [Not Recovered/Not Resolved]
  - Asthma [Not Recovered/Not Resolved]
  - Hypersensitivity [Not Recovered/Not Resolved]
  - Loss of personal independence in daily activities [Not Recovered/Not Resolved]
  - Product use issue [Not Recovered/Not Resolved]
  - Pulmonary function test decreased [Unknown]
  - Respiratory disorder [Unknown]

NARRATIVE: CASE EVENT DATE: 20200101
